FAERS Safety Report 18452869 (Version 1)
Quarter: 2020Q4

REPORT INFORMATION
  Report Type: Spontaneous
  Country: CH (occurrence: CH)
  Receive Date: 20201102
  Receipt Date: 20201102
  Transmission Date: 20210114
  Serious: Yes (Hospitalization, Disabling, Other)
  Sender: FDA-Public Use
  Company Number: CH-009507513-2010CHE011575

PATIENT
  Age: 61 Year
  Sex: Female

DRUGS (2)
  1. KEYTRUDA [Suspect]
     Active Substance: PEMBROLIZUMAB
     Dosage: UNK
     Route: 042
     Dates: start: 20190118
  2. KEYTRUDA [Suspect]
     Active Substance: PEMBROLIZUMAB
     Indication: PLEURAL MESOTHELIOMA MALIGNANT
     Dosage: UNKNOWN
     Route: 042
     Dates: start: 20180412, end: 20200217

REACTIONS (5)
  - Vasculitis [Unknown]
  - Immune-mediated neuropathy [Recovered/Resolved]
  - Colitis [Unknown]
  - Product use in unapproved indication [Unknown]
  - Mononeuropathy multiplex [Not Recovered/Not Resolved]

NARRATIVE: CASE EVENT DATE: 20180412
